FAERS Safety Report 14859759 (Version 4)
Quarter: 2018Q3

REPORT INFORMATION
  Report Type: Spontaneous
  Country: US (occurrence: US)
  Receive Date: 20180508
  Receipt Date: 20180704
  Transmission Date: 20181010
  Serious: Yes (Other)
  Sender: FDA-Public Use
  Company Number: US-PFIZER INC-2018185941

PATIENT
  Age: 57 Year
  Sex: Female

DRUGS (1)
  1. DEPO?MEDROL [Suspect]
     Active Substance: METHYLPREDNISOLONE ACETATE
     Dosage: 80 MG, UNK
     Route: 008
     Dates: start: 20180413

REACTIONS (4)
  - Incorrect route of drug administration [Unknown]
  - Anaphylactic shock [Not Recovered/Not Resolved]
  - Drug hypersensitivity [Unknown]
  - Allergic reaction to excipient [Not Recovered/Not Resolved]

NARRATIVE: CASE EVENT DATE: 20180413
